FAERS Safety Report 7807975-9 (Version None)
Quarter: 2011Q4

REPORT INFORMATION
  Report Type: 
  Country: None (occurrence: None)
  Receive Date: 20111011
  Receipt Date: 20111011
  Transmission Date: 20120403
  Serious: Yes (Other)
  Sender: FDA-Public Use
  Company Number: None

PATIENT
  Age: 63 Year
  Sex: Female
  Weight: 79.378 kg

DRUGS (1)
  1. FEMARA [Suspect]
     Indication: BREAST CANCER
     Dosage: 1 TABLET
     Route: 048
     Dates: start: 20091101, end: 20100501

REACTIONS (6)
  - ASTHENIA [None]
  - PAIN [None]
  - VERTIGO [None]
  - ARTHRALGIA [None]
  - DIZZINESS [None]
  - MUSCULOSKELETAL STIFFNESS [None]
